FAERS Safety Report 9238292 (Version 1)
Quarter: 2013Q2

REPORT INFORMATION
  Report Type: Spontaneous
  Country: AU (occurrence: None)
  Receive Date: 20130416
  Receipt Date: 20130416
  Transmission Date: 20140414
  Serious: Yes (Hospitalization)
  Sender: FDA-Public Use
  Company Number: 2013TP000170

PATIENT
  Sex: Female
  Weight: 71 kg

DRUGS (10)
  1. VERSATIS [Suspect]
     Indication: NEURALGIA
     Route: 061
     Dates: start: 20130304, end: 20130319
  2. EUTHYROX [Concomitant]
  3. HYDROMORPHONE [Concomitant]
  4. NEURONTIN [Concomitant]
  5. METOCLOPRAMIDE HCL/00041901/ [Concomitant]
  6. COLONORM [Concomitant]
  7. TRENTAL [Concomitant]
  8. GLUCOPHAGE/00082701 [Concomitant]
  9. ZOLDEM [Concomitant]
  10. LISINOPRIL ACTAVIS [Concomitant]

REACTIONS (1)
  - Carpal tunnel syndrome [None]
